FAERS Safety Report 19505797 (Version 1)
Quarter: 2021Q3

REPORT INFORMATION
  Report Type: Spontaneous
  Country: DE (occurrence: DE)
  Receive Date: 20210708
  Receipt Date: 20210708
  Transmission Date: 20211014
  Serious: Yes (Hospitalization)
  Sender: FDA-Public Use
  Company Number: DE-TOPROL-2021000137

PATIENT
  Age: 79 Year
  Sex: Male

DRUGS (7)
  1. VOCADO [Suspect]
     Active Substance: AMLODIPINE BESYLATE\OLMESARTAN MEDOXOMIL
     Dosage: 5|40 MG, 2?0?0?0, TABLETTEN
     Route: 048
  2. TAMSULOSIN [Concomitant]
     Active Substance: TAMSULOSIN
     Dosage: 0.4 MG, 0?0?1?0, KAPSELN
     Route: 048
  3. XARELTO [Concomitant]
     Active Substance: RIVAROXABAN
     Dosage: 20 MG, 0?1?0?0, TABLETTEN
     Route: 048
  4. UNSPECIFIED METOPROLOL [Suspect]
     Active Substance: METOPROLOL
     Dosage: 47.5 MG, 1?0?1?0
     Route: 048
  5. ARTELAC 1,6MG AUGENTROPFEN [Concomitant]
     Dosage: 1?1?1?1, AUGENTROPFEN
  6. TORASEMID [Concomitant]
     Active Substance: TORSEMIDE
     Dosage: 5 MG, 1?0?0?0, TABLETTEN
     Route: 048
  7. ZOPICLON [Concomitant]
     Active Substance: ZOPICLONE
     Dosage: 7.5 MG, 0?0?0?1, TABLETTEN
     Route: 048

REACTIONS (3)
  - Syncope [Unknown]
  - Inappropriate schedule of product administration [Unknown]
  - Palpitations [Unknown]
